FAERS Safety Report 21446571 (Version 1)
Quarter: 2022Q4

REPORT INFORMATION
  Report Type: Spontaneous
  Country: US (occurrence: None)
  Receive Date: 20221011
  Receipt Date: 20221011
  Transmission Date: 20230113
  Serious: Yes (Life-Threatening, Hospitalization)
  Sender: FDA-Public Use
  Company Number: None

PATIENT
  Age: 61 Year
  Sex: Male
  Weight: 84 kg

DRUGS (1)
  1. RIVAROXABAN [Suspect]
     Active Substance: RIVAROXABAN
     Dosage: 20 MG EVERY DAY PO?
     Route: 048
     Dates: start: 20200109, end: 20220505

REACTIONS (2)
  - Foreign body in throat [None]
  - Angioedema [None]

NARRATIVE: CASE EVENT DATE: 20220505
